FAERS Safety Report 7648543-1 (Version None)
Quarter: 2011Q3

REPORT INFORMATION
  Report Type: 
  Country: None (occurrence: None)
  Receive Date: 20110801
  Receipt Date: 20110722
  Transmission Date: 20111222
  Serious: Yes (Other)
  Sender: FDA-Public Use
  Company Number: US-ASTRAZENECA-2011SE43878

PATIENT
  Age: 49 Year
  Sex: Female

DRUGS (7)
  1. SEROQUEL XR [Suspect]
     Route: 048
     Dates: start: 20110301
  2. SEROQUEL XR [Suspect]
     Route: 048
     Dates: start: 20110301
  3. TRAZODONE HCL [Concomitant]
  4. SEROQUEL XR [Suspect]
     Indication: POST-TRAUMATIC STRESS DISORDER
     Dosage: 200 MG, TWO TIMES A DAY
     Route: 048
     Dates: start: 20110101, end: 20110101
  5. SEROQUEL XR [Suspect]
     Route: 048
     Dates: start: 20110701
  6. SEROQUEL XR [Suspect]
     Indication: ALCOHOL INDUCED PERSISTING DEMENTIA
     Dosage: 200 MG, TWO TIMES A DAY
     Route: 048
     Dates: start: 20110101, end: 20110101
  7. SEROQUEL XR [Suspect]
     Route: 048
     Dates: start: 20110701

REACTIONS (4)
  - FALL [None]
  - HEAD INJURY [None]
  - DRUG DOSE OMISSION [None]
  - CONVULSION [None]
